FAERS Safety Report 7214345-3 (Version None)
Quarter: 2011Q1

REPORT INFORMATION
  Report Type: 
  Country: None (occurrence: None)
  Receive Date: 20110107
  Receipt Date: 20101229
  Transmission Date: 20110831
  Serious: Yes (Disabling, Other)
  Sender: FDA-Public Use
  Company Number: US-CELGENEUS-163-20785-10121029

PATIENT
  Sex: Female

DRUGS (3)
  1. THALOMID [Suspect]
     Route: 048
     Dates: start: 20101011, end: 20101014
  2. THALOMID [Suspect]
     Indication: MULTIPLE MYELOMA
     Route: 048
     Dates: start: 20100907, end: 20101011
  3. VELCADE [Concomitant]
     Indication: MULTIPLE MYELOMA
     Route: 065
     Dates: start: 20051205, end: 20101021

REACTIONS (2)
  - MUSCULAR WEAKNESS [None]
  - NEUROPATHY PERIPHERAL [None]
